FAERS Safety Report 15289208 (Version 1)
Quarter: 2018Q3

REPORT INFORMATION
  Report Type: Spontaneous
  Country: US (occurrence: US)
  Receive Date: 20180817
  Receipt Date: 20180817
  Transmission Date: 20181010
  Serious: Yes (Other)
  Sender: FDA-Public Use
  Company Number: US-SA-2018SA218118

PATIENT
  Age: 31 Year
  Sex: Male

DRUGS (1)
  1. SOLIQUA 100/33 [Suspect]
     Active Substance: INSULIN GLARGINE\LIXISENATIDE
     Indication: TYPE 2 DIABETES MELLITUS

REACTIONS (8)
  - Appendicectomy [Unknown]
  - Sciatica [Unknown]
  - Rotator cuff repair [Unknown]
  - Polyarthritis [Unknown]
  - Cholecystectomy [Unknown]
  - Umbilical hernia repair [Unknown]
  - Toe operation [Unknown]
  - Spondylolisthesis [Unknown]
